FAERS Safety Report 6938196-X (Version None)
Quarter: 2010Q3

REPORT INFORMATION
  Report Type: 
  Country: None (occurrence: None)
  Receive Date: 20100824
  Receipt Date: 20100819
  Transmission Date: 20110219
  Serious: Yes (Death)
  Sender: FDA-Public Use
  Company Number: DK-SANOFI-AVENTIS-2010SA049383

PATIENT

DRUGS (2)
  1. OXALIPLATIN [Suspect]
  2. XELODA [Suspect]

REACTIONS (1)
  - DEATH [None]
